FAERS Safety Report 7047649-8 (Version None)
Quarter: 2010Q4

REPORT INFORMATION
  Report Type: 
  Country: None (occurrence: None)
  Receive Date: 20101014
  Receipt Date: 20101014
  Transmission Date: 20110411
  Serious: Yes (Hospitalization)
  Sender: FDA-Public Use
  Company Number: None

PATIENT
  Sex: Male

DRUGS (6)
  1. XELODA [Suspect]
     Indication: METASTATIC GASTRIC CANCER
     Dosage: 850MG/M2 BID X14 DAYS PO
     Route: 048
     Dates: start: 20100902
  2. CETUXIMAB [Suspect]
     Indication: METASTATIC GASTRIC CANCER
     Dosage: 400MG/M2 WEEKLY X3 IV
     Route: 042
     Dates: start: 20100902
  3. OXALIPLATIN [Concomitant]
     Indication: METASTATIC GASTRIC CANCER
     Dosage: 130 MG/M2 D1 Q 3WEEKS IV
     Route: 042
     Dates: start: 20100902
  4. VYTORIN [Concomitant]
  5. OMEPRAZOLE [Concomitant]
  6. LOVENOX [Suspect]

REACTIONS (9)
  - DECREASED APPETITE [None]
  - DEHYDRATION [None]
  - GAIT DISTURBANCE [None]
  - HYPOAESTHESIA [None]
  - MALNUTRITION [None]
  - METASTASES TO MENINGES [None]
  - NAUSEA [None]
  - VISION BLURRED [None]
  - WEIGHT DECREASED [None]
